FAERS Safety Report 5431456-3 (Version None)
Quarter: 2007Q3

REPORT INFORMATION
  Report Type: 
  Country: None (occurrence: None)
  Receive Date: 20070830
  Receipt Date: 20070626
  Transmission Date: 20080115
  Serious: No
  Sender: FDA-Public Use
  Company Number: A0660237A

PATIENT
  Age: 50 Year
  Sex: Male

DRUGS (3)
  1. WELLBUTRIN XL [Suspect]
     Indication: DRUG USE FOR UNKNOWN INDICATION
     Dosage: 150MG PER DAY
     Route: 048
     Dates: start: 20070501, end: 20070501
  2. DIOVAN [Concomitant]
  3. VYTORIN [Concomitant]

REACTIONS (8)
  - ANXIETY [None]
  - DIZZINESS [None]
  - EAR DISCOMFORT [None]
  - EMOTIONAL DISTRESS [None]
  - FRUSTRATION [None]
  - HYPOACUSIS [None]
  - IRRITABILITY [None]
  - NAUSEA [None]
